FAERS Safety Report 7134157-9 (Version None)
Quarter: 2010Q4

REPORT INFORMATION
  Report Type: 
  Country: None (occurrence: None)
  Receive Date: 20101203
  Receipt Date: 20101126
  Transmission Date: 20110411
  Serious: Yes (Hospitalization, Other)
  Sender: FDA-Public Use
  Company Number: GB-US-EMD SERONO, INC.-220016J10GBR

PATIENT
  Sex: Female
  Weight: 12.8 kg

DRUGS (10)
  1. SAIZEN [Suspect]
     Indication: PRODUCT USED FOR UNKNOWN INDICATION
     Route: 058
     Dates: start: 20100118, end: 20100130
  2. SAIZEN [Suspect]
     Dates: start: 20100101, end: 20100127
  3. CYCLOSPORINE [Concomitant]
  4. SODIUM BICARBONATE [Concomitant]
  5. PHOSPHATE [Concomitant]
  6. CALCIUM SANDOZ [Concomitant]
  7. MAGNESIUM [Concomitant]
  8. AUGMENTIN '125' [Concomitant]
     Indication: PROPHYLAXIS
  9. ONE ALPHA CALCIDOL [Concomitant]
  10. KETOVITE [Concomitant]

REACTIONS (5)
  - DIARRHOEA [None]
  - PNEUMONIA [None]
  - PRURITUS [None]
  - SWELLING FACE [None]
  - VOMITING [None]
